FAERS Safety Report 8451544-7 (Version None)
Quarter: 2012Q2

REPORT INFORMATION
  Report Type: 
  Country: None (occurrence: None)
  Receive Date: 20120620
  Receipt Date: 20120514
  Transmission Date: 20120825
  Serious: No
  Sender: FDA-Public Use
  Company Number: US-VERTEX PHARMACEUTICALS INC.-AE-2012-003255

PATIENT
  Sex: Male
  Weight: 68.1 kg

DRUGS (4)
  1. CYMBALTA [Concomitant]
     Indication: DEPRESSION
     Route: 048
  2. INCIVEK [Suspect]
     Indication: HEPATITIS C
     Route: 048
     Dates: start: 20120228, end: 20120308
  3. PEGASYS [Concomitant]
     Indication: HEPATITIS C
     Route: 058
     Dates: start: 20120228, end: 20120308
  4. RIBAVIRIN [Concomitant]
     Indication: HEPATITIS C
     Route: 048
     Dates: start: 20120228, end: 20120308

REACTIONS (4)
  - DIARRHOEA [None]
  - VOMITING [None]
  - DRUG DOSE OMISSION [None]
  - NAUSEA [None]
